FAERS Safety Report 9416065 (Version 2)
Quarter: 2013Q3

REPORT INFORMATION
  Report Type: Other
  Country: US (occurrence: US)
  Receive Date: 20130724
  Receipt Date: 20130807
  Transmission Date: 20140515
  Serious: Yes (Hospitalization)
  Sender: FDA-Public Use
  Company Number: US-SHIRE-ALL1-2013-04888

PATIENT
  Sex: Male

DRUGS (1)
  1. ELAPRASE [Suspect]
     Indication: MUCOPOLYSACCHARIDOSIS
     Dosage: 12 MG, 1X/WEEK
     Route: 041
     Dates: start: 20120612

REACTIONS (2)
  - Influenza [Unknown]
  - Diarrhoea [Unknown]
